FAERS Safety Report 4356455-4 (Version None)
Quarter: 2004Q2

REPORT INFORMATION
  Report Type: 
  Country: None (occurrence: None)
  Receive Date: 20040510
  Receipt Date: 20040510
  Transmission Date: 20050107
  Serious: Yes (Life-Threatening, Other)
  Sender: FDA-Public Use
  Company Number: None

PATIENT
  Sex: Female
  Weight: 58.0604 kg

DRUGS (5)
  1. EFFEXOR XR [Suspect]
     Indication: BIPOLAR DISORDER
     Dosage: 150 MG PO QD
     Route: 048
     Dates: start: 20031201, end: 20040501
  2. ALCOHOL [Suspect]
  3. STRATTERA [Concomitant]
  4. CLONAZEPAM [Concomitant]
  5. DOXYCYCLINE [Concomitant]

REACTIONS (7)
  - AGGRESSION [None]
  - ALCOHOL USE [None]
  - AMNESIA [None]
  - DEPRESSED LEVEL OF CONSCIOUSNESS [None]
  - DISSOCIATION [None]
  - PSYCHOTIC DISORDER [None]
  - SELF INJURIOUS BEHAVIOUR [None]
